FAERS Safety Report 8385339-X (Version None)
Quarter: 2012Q2

REPORT INFORMATION
  Report Type: 
  Country: None (occurrence: None)
  Receive Date: 20120525
  Receipt Date: 20120516
  Transmission Date: 20120825
  Serious: No
  Sender: FDA-Public Use
  Company Number: US-BIOGENIDEC-2012BI017459

PATIENT
  Sex: Male

DRUGS (3)
  1. TYSABRI [Suspect]
     Indication: MULTIPLE SCLEROSIS
     Route: 042
     Dates: start: 20050120, end: 20050120
  2. TYSABRI [Suspect]
     Route: 042
     Dates: start: 20110526, end: 20120120
  3. TYSABRI [Suspect]
     Route: 042
     Dates: start: 20080818, end: 20101014

REACTIONS (1)
  - GENERAL SYMPTOM [None]
